FAERS Safety Report 12903785 (Version 1)
Quarter: 2016Q4

REPORT INFORMATION
  Report Type: Spontaneous
  Country: FR (occurrence: FR)
  Receive Date: 20161102
  Receipt Date: 20161102
  Transmission Date: 20170207
  Serious: Yes (Hospitalization)
  Sender: FDA-Public Use
  Company Number: FR-ROCHE-1848351

PATIENT
  Age: 66 Year
  Sex: Female

DRUGS (11)
  1. MIANSERINE [Concomitant]
     Active Substance: MIANSERIN HYDROCHLORIDE
  2. ZELBORAF [Suspect]
     Active Substance: VEMURAFENIB
     Indication: MALIGNANT MELANOMA
     Dosage: 4 TABLETS MORNING AND EVENING
     Route: 048
     Dates: start: 20160506
  3. PANTOPRAZOLE [Concomitant]
     Active Substance: PANTOPRAZOLE SODIUM
  4. ZOPICLONE [Concomitant]
     Active Substance: ZOPICLONE
  5. CORTANCYL [Concomitant]
     Active Substance: PREDNISONE
  6. ZELBORAF [Suspect]
     Active Substance: VEMURAFENIB
     Dosage: 2 TABLETS MORNING AND EVENING
     Route: 048
  7. COTELLIC [Suspect]
     Active Substance: COBIMETINIB
     Indication: MALIGNANT MELANOMA
     Dosage: 3 TABLETS PER DAY
     Route: 048
     Dates: start: 20160506
  8. KEPPRA [Concomitant]
     Active Substance: LEVETIRACETAM
  9. PRINCI-B FORT [Concomitant]
     Active Substance: CYANOCOBALAMIN\PYRIDOXINE\THIAMINE
  10. COTELLIC [Suspect]
     Active Substance: COBIMETINIB
     Dosage: 2 TABLETS PER DAY
     Route: 048
  11. LEVOTHYROX [Concomitant]
     Active Substance: LEVOTHYROXINE

REACTIONS (2)
  - Asthenia [Recovered/Resolved]
  - Photosensitivity reaction [Recovered/Resolved]

NARRATIVE: CASE EVENT DATE: 20160603
